FAERS Safety Report 5241666-6 (Version None)
Quarter: 2007Q1

REPORT INFORMATION
  Report Type: 
  Country: None (occurrence: None)
  Receive Date: 20070220
  Receipt Date: 20070208
  Transmission Date: 20070707
  Serious: Yes (Hospitalization)
  Sender: FDA-Public Use
  Company Number: US-ELI_LILLY_AND_COMPANY-US200702001694

PATIENT
  Age: 90 Year
  Sex: Female

DRUGS (3)
  1. FORTEO [Suspect]
     Indication: OSTEOPOROSIS
     Dates: start: 20050801, end: 20070124
  2. THYROID TAB [Concomitant]
  3. VITAMINS-MINERALS THERAPEUTIC [Concomitant]

REACTIONS (2)
  - POSTOPERATIVE ADHESION [None]
  - SMALL INTESTINAL OBSTRUCTION [None]
